FAERS Safety Report 7472614-6 (Version None)
Quarter: 2011Q2

REPORT INFORMATION
  Report Type: 
  Country: None (occurrence: None)
  Receive Date: 20110511
  Receipt Date: 20110504
  Transmission Date: 20111010
  Serious: Yes (Hospitalization)
  Sender: FDA-Public Use
  Company Number: US-BRISTOL-MYERS SQUIBB COMPANY-15721129

PATIENT
  Age: 41 Year
  Sex: Female

DRUGS (6)
  1. NASONEX [Concomitant]
  2. ORENCIA [Suspect]
     Indication: RHEUMATOID ARTHRITIS
     Dosage: DOSE REDUCED TO 750MG,SLOWED THE INFUSION RATE TO 55 MINUTES,LAST DOSE ON 11 APRIL 2011.
  3. PLAQUENIL [Concomitant]
  4. TRAMADOL HCL [Concomitant]
  5. ERYTHROMYCIN [Concomitant]
  6. ALLEGRA [Concomitant]

REACTIONS (7)
  - BREAST MASS [None]
  - ELECTROCARDIOGRAM ABNORMAL [None]
  - HEADACHE [None]
  - HAEMATOCHEZIA [None]
  - CHEST PAIN [None]
  - DIZZINESS [None]
  - VOMITING [None]
